FAERS Safety Report 15703912 (Version 1)
Quarter: 2018Q4

REPORT INFORMATION
  Report Type: Spontaneous
  Country: US (occurrence: US)
  Receive Date: 20181210
  Receipt Date: 20181210
  Transmission Date: 20190205
  Serious: Yes (Hospitalization, Other)
  Sender: FDA-Public Use
  Company Number: US-ALEMBIC PHARMACUETICALS LIMITED-2018SCAL000907

PATIENT

DRUGS (3)
  1. METRONIDAZOLE. [Suspect]
     Active Substance: METRONIDAZOLE
     Indication: OSTEOMYELITIS
     Dosage: UNK
  2. CLINDAMYCIN. [Suspect]
     Active Substance: CLINDAMYCIN
     Indication: OSTEOMYELITIS
     Dosage: UNK
  3. DAPTOMYCIN. [Suspect]
     Active Substance: DAPTOMYCIN
     Indication: OSTEOMYELITIS
     Dosage: UNK

REACTIONS (13)
  - Chest pain [Recovering/Resolving]
  - Condition aggravated [Recovering/Resolving]
  - Generalised erythema [Recovering/Resolving]
  - Pyrexia [Recovering/Resolving]
  - Drug reaction with eosinophilia and systemic symptoms [Recovering/Resolving]
  - Rash pruritic [Recovering/Resolving]
  - Acute kidney injury [Recovering/Resolving]
  - Troponin I increased [Recovering/Resolving]
  - Myocarditis [Recovering/Resolving]
  - Face oedema [Recovering/Resolving]
  - Lymphadenopathy [Recovering/Resolving]
  - Ventricular extrasystoles [Recovering/Resolving]
  - Transaminases increased [Recovering/Resolving]
